FAERS Safety Report 9636982 (Version 1)
Quarter: 2013Q4

REPORT INFORMATION
  Report Type: Spontaneous
  Country: KR (occurrence: KR)
  Receive Date: 20131022
  Receipt Date: 20131022
  Transmission Date: 20140711
  Serious: Yes (Hospitalization)
  Sender: FDA-Public Use
  Company Number: KR-009507513-1310KOR009129

PATIENT
  Age: 79 Year
  Sex: Male

DRUGS (1)
  1. FOSAMAX PLUS [Suspect]
     Indication: OSTEOPOROSIS
     Dosage: 1 DF, QAM
     Route: 048
     Dates: start: 20130829, end: 20130829

REACTIONS (1)
  - Pain [Recovered/Resolved]
